FAERS Safety Report 5838286-9 (Version None)
Quarter: 2008Q3

REPORT INFORMATION
  Report Type: 
  Country: None (occurrence: None)
  Receive Date: 20080808
  Receipt Date: 20080729
  Transmission Date: 20090109
  Serious: Yes (Hospitalization, Other)
  Sender: FDA-Public Use
  Company Number: DE-BRISTOL-MYERS SQUIBB COMPANY-14290688

PATIENT
  Age: 69 Year
  Sex: Female
  Weight: 53 kg

DRUGS (8)
  1. CETUXIMAB [Suspect]
     Indication: COLORECTAL CANCER
     Dosage: RECENT INFUSION DATE: 23JUL2008
     Route: 042
     Dates: start: 20080627
  2. IRINOTECAN HCL [Suspect]
     Indication: COLORECTAL CANCER
     Route: 042
     Dates: start: 20080627
  3. FLUOROURACIL [Suspect]
     Indication: COLORECTAL CANCER
     Route: 042
     Dates: start: 20080627
  4. FOLINIC ACID [Suspect]
     Indication: COLORECTAL CANCER
     Route: 042
     Dates: start: 20080627
  5. ASPIRIN [Concomitant]
     Route: 048
  6. PLASTULEN [Concomitant]
     Route: 048
  7. PANTOZOL [Concomitant]
     Route: 048
  8. EUTHYROX [Concomitant]
     Route: 048

REACTIONS (1)
  - SYNCOPE [None]
